FAERS Safety Report 5258388-8 (Version None)
Quarter: 2007Q1

REPORT INFORMATION
  Report Type: 
  Country: None (occurrence: None)
  Receive Date: 20061117
  Receipt Date: 20060306
  Transmission Date: 20070707
  Serious: Yes (Hospitalization)
  Sender: FDA-Public Use
  Company Number: US-JNJFOC-20060302426

PATIENT
  Age: 62 Year
  Sex: Female

DRUGS (6)
  1. LEVOFLOXACIN [Suspect]
     Indication: BRONCHITIS
     Dosage: 750 MG, 1 IN 1 DAY
  2. AVELOX [Suspect]
     Indication: BRONCHITIS
     Dosage: 400 MG, ORAL
     Route: 048
  3. EVISTA [Concomitant]
  4. FOSAMAX [Concomitant]
  5. MULTIVITAMIN [Concomitant]
  6. VITAMIN E [Concomitant]

REACTIONS (2)
  - DYSGEUSIA [None]
  - PSEUDOMEMBRANOUS COLITIS [None]
